FAERS Safety Report 7537351-8 (Version None)
Quarter: 2011Q2

REPORT INFORMATION
  Report Type: 
  Country: None (occurrence: None)
  Receive Date: 20110609
  Receipt Date: 20110531
  Transmission Date: 20111010
  Serious: Yes (Hospitalization, Disabling, Other)
  Sender: FDA-Public Use
  Company Number: US-MERCK-1103USA00269

PATIENT
  Age: 61 Year
  Sex: Female
  Weight: 49 kg

DRUGS (4)
  1. FOSAMAX [Suspect]
     Indication: OSTEOPOROSIS
     Route: 048
     Dates: start: 20000401, end: 20080101
  2. ALENDRONATE SODIUM [Suspect]
     Indication: OSTEOPENIA
     Route: 048
     Dates: start: 20080303, end: 20100201
  3. FOSAMAX [Suspect]
     Indication: OSTEOPENIA
     Route: 048
     Dates: start: 20000401, end: 20080101
  4. ALENDRONATE SODIUM [Suspect]
     Indication: OSTEOPOROSIS
     Route: 048
     Dates: start: 20080303, end: 20100201

REACTIONS (48)
  - GASTROOESOPHAGEAL REFLUX DISEASE [None]
  - STRESS [None]
  - MAMMOGRAM ABNORMAL [None]
  - DIZZINESS [None]
  - EPISTAXIS [None]
  - PRURITUS GENERALISED [None]
  - HYPERTENSION [None]
  - ADVERSE DRUG REACTION [None]
  - FEMUR FRACTURE [None]
  - ANAEMIA POSTOPERATIVE [None]
  - UTERINE DISORDER [None]
  - HERPES ZOSTER [None]
  - GAIT DISTURBANCE [None]
  - PAIN IN EXTREMITY [None]
  - FATIGUE [None]
  - MYALGIA [None]
  - LEIOMYOMA [None]
  - INCISION SITE CELLULITIS [None]
  - ECZEMA [None]
  - BODY HEIGHT DECREASED [None]
  - SYNCOPE [None]
  - ANKLE FRACTURE [None]
  - HAEMORRHOIDS [None]
  - HYPERCHOLESTEROLAEMIA [None]
  - SEBORRHOEIC KERATOSIS [None]
  - PAIN [None]
  - LIMB DISCOMFORT [None]
  - CORONARY ARTERY DISEASE [None]
  - CATARACT [None]
  - MUSCULOSKELETAL DISCOMFORT [None]
  - TERMINAL INSOMNIA [None]
  - OVARIAN DISORDER [None]
  - MUSCLE SPASMS [None]
  - HYPERLIPIDAEMIA [None]
  - HAEMATURIA [None]
  - FOOT FRACTURE [None]
  - POSTOPERATIVE WOUND INFECTION [None]
  - VAGINAL INFECTION [None]
  - MENTAL IMPAIRMENT [None]
  - ARTHRALGIA [None]
  - PEPTIC ULCER [None]
  - DIABETES MELLITUS INADEQUATE CONTROL [None]
  - TYPE 2 DIABETES MELLITUS [None]
  - INAPPROPRIATE ANTIDIURETIC HORMONE SECRETION [None]
  - INCISION SITE ABSCESS [None]
  - EXERCISE TOLERANCE DECREASED [None]
  - BLADDER DISORDER [None]
  - DELAYED RECOVERY FROM ANAESTHESIA [None]
